FAERS Safety Report 6841454-0 (Version None)
Quarter: 2010Q3

REPORT INFORMATION
  Report Type: 
  Country: None (occurrence: None)
  Receive Date: 20100714
  Receipt Date: 20070705
  Transmission Date: 20110219
  Serious: No
  Sender: FDA-Public Use
  Company Number: US-PFIZER INC-2007056582

PATIENT
  Sex: Female
  Weight: 50 kg

DRUGS (6)
  1. CHANTIX [Suspect]
     Indication: SMOKING CESSATION THERAPY
     Dates: start: 20070701
  2. BACLOFEN [Concomitant]
  3. VALIUM [Concomitant]
  4. AMLODIPINE [Concomitant]
  5. BOTOX [Concomitant]
     Route: 030
  6. VITAMINS [Concomitant]

REACTIONS (2)
  - INSOMNIA [None]
  - NERVOUSNESS [None]
